FAERS Safety Report 20125809 (Version 1)
Quarter: 2021Q4

REPORT INFORMATION
  Report Type: Spontaneous
  Country: CN (occurrence: CN)
  Receive Date: 20211129
  Receipt Date: 20211129
  Transmission Date: 20220303
  Serious: Yes (Hospitalization)
  Sender: FDA-Public Use
  Company Number: CN-SA-SAC20211126001025

PATIENT
  Age: 51 Year
  Sex: Female
  Weight: 64.8 kg

DRUGS (1)
  1. LIXISENATIDE [Suspect]
     Active Substance: LIXISENATIDE
     Indication: Type 2 diabetes mellitus
     Dosage: 0.2 ML, QD
     Route: 058
     Dates: start: 20211004, end: 20211104

REACTIONS (2)
  - Oedema [Recovering/Resolving]
  - Abdominal distension [Recovering/Resolving]

NARRATIVE: CASE EVENT DATE: 20211103
